FAERS Safety Report 4742979-4 (Version None)
Quarter: 2005Q3

REPORT INFORMATION
  Report Type: 
  Country: None (occurrence: None)
  Receive Date: 20050810
  Receipt Date: 20050810
  Transmission Date: 20060218
  Serious: Yes (Other)
  Sender: FDA-Public Use
  Company Number: None

PATIENT
  Sex: Female

DRUGS (5)
  1. COPPERTONE BUG + SUN KIDS SPF 30 LOTION [Suspect]
     Dosage: ONCE TOPICAL
     Route: 061
     Dates: start: 20050709, end: 20050709
  2. COUMADIN [Concomitant]
  3. ALLEGRA [Concomitant]
  4. NEXIUM [Concomitant]
  5. VITAMINS/MINERALS/DIETARY SUPPLEMENTS [Concomitant]

REACTIONS (11)
  - ASTHENIA [None]
  - CONFUSIONAL STATE [None]
  - DIZZINESS [None]
  - FEELING HOT [None]
  - INTERNATIONAL NORMALISED RATIO INCREASED [None]
  - MALAISE [None]
  - NAUSEA [None]
  - ORAL INTAKE REDUCED [None]
  - PROTHROMBIN TIME PROLONGED [None]
  - RETCHING [None]
  - SPEECH DISORDER [None]
